FAERS Safety Report 10413151 (Version 1)
Quarter: 2014Q3

REPORT INFORMATION
  Report Type: Spontaneous
  Country: US (occurrence: None)
  Receive Date: 20140825
  Receipt Date: 20140825
  Transmission Date: 20150326
  Serious: Yes (Other)
  Sender: FDA-Public Use
  Company Number: US-H14001-14-00411

PATIENT
  Age: 69 Year

DRUGS (2)
  1. DEXAMETHASONE. [Suspect]
     Active Substance: DEXAMETHASONE
     Indication: PLASMA CELL MYELOMA
     Dosage: DAYS A AND 4 EVERY 7 DAU=YS 1 WK OFF EVERY 14 DAYS, IV
     Dates: start: 20110426, end: 20110721
  2. DOXYCYCLINE HYDROCHLORIDE [Concomitant]
     Active Substance: DOXYCYCLINE HYDROCHLORIDE

REACTIONS (4)
  - Cardiac failure [None]
  - Blood potassium abnormal [None]
  - Blood albumin abnormal [None]
  - Orthostatic hypotension [None]

NARRATIVE: CASE EVENT DATE: 20111002
